FAERS Safety Report 9219075 (Version 1)
Quarter: 2013Q2

REPORT INFORMATION
  Report Type: Spontaneous
  Country: US (occurrence: None)
  Receive Date: 20130405
  Receipt Date: 20130405
  Transmission Date: 20140414
  Serious: No
  Sender: FDA-Public Use
  Company Number: None

PATIENT
  Age: 71 Year
  Sex: Male

DRUGS (1)
  1. ZYTIGA [Suspect]
     Indication: PROSTATE CANCER
     Route: 048
     Dates: start: 20130313

REACTIONS (6)
  - Chills [None]
  - Pyrexia [None]
  - Hot flush [None]
  - Nausea [None]
  - Arthralgia [None]
  - Fatigue [None]
